FAERS Safety Report 20090846 (Version 1)
Quarter: 2021Q4

REPORT INFORMATION
  Report Type: Report from Study
  Country: US (occurrence: US)
  Receive Date: 20211119
  Receipt Date: 20211119
  Transmission Date: 20220303
  Serious: Yes (Other)
  Sender: FDA-Public Use
  Company Number: US-NOVARTISPH-NVSC2020US360523

PATIENT
  Sex: Male
  Weight: 62.6 kg

DRUGS (9)
  1. LUTATHERA [Suspect]
     Active Substance: LUTETIUM OXODOTREOTIDE LU-177
     Indication: Product used for unknown indication
     Route: 065
  2. CARBOPLATIN [Suspect]
     Active Substance: CARBOPLATIN
     Indication: Product used for unknown indication
     Route: 065
     Dates: start: 20190916, end: 20191007
  3. OCTREOTIDE [Suspect]
     Active Substance: OCTREOTIDE
     Indication: Pancreatic neuroendocrine tumour
     Dosage: UNK
     Route: 065
     Dates: end: 20200220
  4. OCTREOTIDE [Suspect]
     Active Substance: OCTREOTIDE
     Indication: Hepatic neuroendocrine tumour
  5. OCTREOTIDE [Suspect]
     Active Substance: OCTREOTIDE
     Indication: Retroperitoneal lymphadenopathy
  6. ETOPOSIDE [Suspect]
     Active Substance: ETOPOSIDE
     Indication: Product used for unknown indication
     Route: 065
     Dates: start: 20190916, end: 20191007
  7. LACTULOSE [Suspect]
     Active Substance: LACTULOSE
     Indication: Product used for unknown indication
     Route: 065
  8. ONDANSETRON [Suspect]
     Active Substance: ONDANSETRON
     Indication: Product used for unknown indication
     Route: 065
  9. OXYCODONE [Suspect]
     Active Substance: OXYCODONE
     Indication: Product used for unknown indication
     Route: 065

REACTIONS (18)
  - Pancreatic neuroendocrine tumour [Unknown]
  - Hepatic neuroendocrine tumour [Unknown]
  - Malignant neoplasm progression [Unknown]
  - Retroperitoneal lymphadenopathy [Unknown]
  - Lethargy [Unknown]
  - Dry mouth [Unknown]
  - Nocturia [Unknown]
  - Gait disturbance [Unknown]
  - Decreased appetite [Unknown]
  - Dyspnoea [Unknown]
  - Infusion related reaction [Unknown]
  - Blood pressure systolic increased [Unknown]
  - Blood pressure diastolic decreased [Unknown]
  - Oxygen saturation decreased [Unknown]
  - Performance status decreased [Unknown]
  - Fatigue [Unknown]
  - Pyrexia [Unknown]
  - Dizziness [Unknown]
